FAERS Safety Report 4779010-0 (Version None)
Quarter: 2005Q3

REPORT INFORMATION
  Report Type: 
  Country: None (occurrence: None)
  Receive Date: 20050923
  Receipt Date: 20050915
  Transmission Date: 20060218
  Serious: Yes (Other)
  Sender: FDA-Public Use
  Company Number: 217769

PATIENT
  Age: 51 Year
  Sex: Male

DRUGS (7)
  1. RITUXAN [Suspect]
     Indication: NON-HODGKIN'S LYMPHOMA
     Dosage: 600 MG INTRAVENOUS
     Route: 042
     Dates: start: 20011112, end: 20020118
  2. CYCLOPHOSPHAMIDE [Concomitant]
  3. CYTARABINE [Concomitant]
  4. DECADRON [Concomitant]
  5. ETOPOSIDE [Concomitant]
  6. POLARAMINE [Concomitant]
  7. LOXONIN (LOXOPROFEN SODIUM) [Concomitant]

REACTIONS (8)
  - ANAEMIA [None]
  - ANAPHYLACTOID REACTION [None]
  - HEPATIC FUNCTION ABNORMAL [None]
  - LYMPHADENOPATHY [None]
  - NEUTROPHIL COUNT DECREASED [None]
  - PHARYNGITIS [None]
  - PLATELET COUNT DECREASED [None]
  - WHITE BLOOD CELL COUNT DECREASED [None]
